FAERS Safety Report 10079967 (Version 2)
Quarter: 2014Q2

REPORT INFORMATION
  Report Type: Spontaneous
  Country: DE (occurrence: DE)
  Receive Date: 20140415
  Receipt Date: 20140422
  Transmission Date: 20141212
  Serious: Yes (Hospitalization, Other)
  Sender: FDA-Public Use
  Company Number: DE-B.I. PHARMACEUTICALS,INC./RIDGEFIELD-2014-BI-16850DE

PATIENT
  Age: 82 Year
  Sex: Female

DRUGS (10)
  1. PRADAXA [Suspect]
     Indication: ATRIAL FIBRILLATION
     Dosage: 220 MG
     Route: 065
     Dates: start: 20140204
  2. VALSARTAN 320 [Concomitant]
     Dosage: DOSE PER APPLICATION : 320
     Route: 065
  3. MOXONIDIN [Concomitant]
     Route: 065
  4. THORASEMID [Concomitant]
     Route: 065
  5. HYGROTON 50 [Concomitant]
     Dosage: DOSE PER APPLICATION: 50
     Route: 065
  6. INSULIN [Concomitant]
     Route: 065
  7. BELO ZOC [Concomitant]
     Route: 065
  8. SIMVA 40 [Concomitant]
     Dosage: DOSE PER APPLICATION :  40
     Route: 065
  9. PANTOPRAZOL 40 [Concomitant]
     Dosage: DOSE PER APPLICATION: 40
     Route: 065
  10. AMLODIPINE [Concomitant]
     Route: 065

REACTIONS (6)
  - Intracardiac thrombus [Unknown]
  - Atrial thrombosis [Unknown]
  - Tachyarrhythmia [Unknown]
  - Tachycardia [Unknown]
  - Painful respiration [Unknown]
  - Drug ineffective [Unknown]
